FAERS Safety Report 7003890-1 (Version None)
Quarter: 2010Q3

REPORT INFORMATION
  Report Type: 
  Country: None (occurrence: None)
  Receive Date: 20100920
  Receipt Date: 20100105
  Transmission Date: 20110219
  Serious: No
  Sender: FDA-Public Use
  Company Number: US-WYE-H12891210

PATIENT
  Sex: Male
  Weight: 68.1 kg

DRUGS (9)
  1. PROTONIX [Suspect]
     Indication: GASTROOESOPHAGEAL REFLUX DISEASE
     Route: 048
     Dates: start: 20091218
  2. SINEMET [Concomitant]
  3. WARFARIN SODIUM [Concomitant]
  4. ALPRAZOLAM [Concomitant]
  5. PRIMIDONE [Concomitant]
  6. ARICEPT [Concomitant]
  7. SINGULAIR [Concomitant]
  8. CARDIZEM [Concomitant]
  9. EFFEXOR [Concomitant]

REACTIONS (1)
  - DRUG SCREEN POSITIVE [None]
